FAERS Safety Report 23236085 (Version 3)
Quarter: 2024Q4

REPORT INFORMATION
  Report Type: Spontaneous
  Country: AU (occurrence: AU)
  Receive Date: 20231128
  Receipt Date: 20241025
  Transmission Date: 20250115
  Serious: Yes (Death, Life-Threatening, Hospitalization, Disabling, Other)
  Sender: NOVARTIS
  Company Number: AU-002147023-NVSC2023AU240802

PATIENT
  Age: 73 Year
  Sex: Female
  Weight: 71.4 kg

DRUGS (1)
  1. KYMRIAH [Suspect]
     Active Substance: TISAGENLECLEUCEL
     Indication: Diffuse large B-cell lymphoma
     Dosage: UNK, ONCE/SINGLE
     Route: 042
     Dates: start: 20231106, end: 20231106

REACTIONS (6)
  - Death [Fatal]
  - Infusion related reaction [Recovering/Resolving]
  - Tachycardia [Unknown]
  - Tachypnoea [Unknown]
  - Blood pressure increased [Unknown]
  - Body temperature increased [Unknown]

NARRATIVE: CASE EVENT DATE: 20231106
